FAERS Safety Report 7734152-2 (Version None)
Quarter: 2011Q3

REPORT INFORMATION
  Report Type: 
  Country: None (occurrence: None)
  Receive Date: 20110906
  Receipt Date: 20110906
  Transmission Date: 20111222
  Serious: Yes (Hospitalization)
  Sender: FDA-Public Use
  Company Number: None

PATIENT
  Age: 67 Year
  Sex: Male
  Weight: 84.5 kg

DRUGS (1)
  1. ATENOLOL [Suspect]
     Dosage: 100 MG EVERY DAY PO
     Route: 048
     Dates: start: 20091222

REACTIONS (2)
  - CHEST PAIN [None]
  - HYPERTENSION [None]
